FAERS Safety Report 6897899-6 (Version None)
Quarter: 2010Q3

REPORT INFORMATION
  Report Type: 
  Country: None (occurrence: None)
  Receive Date: 20100802
  Receipt Date: 20070816
  Transmission Date: 20110219
  Serious: Yes (Other)
  Sender: FDA-Public Use
  Company Number: US-PFIZER INC-2007068990

PATIENT
  Sex: Female

DRUGS (5)
  1. LYRICA [Suspect]
     Indication: ANXIETY
     Dates: start: 20070101
  2. WELLBUTRIN [Concomitant]
  3. ABILIFY [Concomitant]
  4. LASIX [Concomitant]
  5. POTASSIUM [Concomitant]

REACTIONS (4)
  - OEDEMA [None]
  - SOMNOLENCE [None]
  - VISION BLURRED [None]
  - WEIGHT INCREASED [None]
